FAERS Safety Report 6105709-X (Version None)
Quarter: 2009Q1

REPORT INFORMATION
  Report Type: 
  Country: None (occurrence: None)
  Receive Date: 20090304
  Receipt Date: 20090304
  Transmission Date: 20090719
  Serious: Yes (Death)
  Sender: FDA-Public Use
  Company Number: None

PATIENT
  Age: 50 Year
  Sex: Female
  Weight: 102 kg

DRUGS (2)
  1. VIDAZA [Suspect]
  2. TARCEVA [Suspect]

REACTIONS (5)
  - DISEASE PROGRESSION [None]
  - HYPERCALCAEMIA [None]
  - MENTAL STATUS CHANGES [None]
  - MOTOR DYSFUNCTION [None]
  - SPEECH DISORDER [None]
